FAERS Safety Report 19525450 (Version 2)
Quarter: 2021Q3

REPORT INFORMATION
  Report Type: Report from Study
  Country: None (occurrence: CO)
  Receive Date: 20210712
  Receipt Date: 20210908
  Transmission Date: 20211014
  Serious: Yes (Hospitalization, Other)
  Sender: FDA-Public Use
  Company Number: CO-ABBVIE-21K-036-3985907-00

PATIENT
  Sex: Female
  Weight: 67 kg

DRUGS (2)
  1. ZEMPLAR [Suspect]
     Active Substance: PARICALCITOL
     Indication: CHRONIC KIDNEY DISEASE
  2. ZEMPLAR [Suspect]
     Active Substance: PARICALCITOL
     Indication: HYPERPARATHYROIDISM SECONDARY
     Route: 042
     Dates: start: 20170127, end: 20210622

REACTIONS (12)
  - Osteoporosis [Recovering/Resolving]
  - Pain [Recovering/Resolving]
  - Cataract [Recovering/Resolving]
  - Pyrexia [Recovering/Resolving]
  - Cardiovascular disorder [Recovering/Resolving]
  - Chills [Recovering/Resolving]
  - Arthropathy [Recovering/Resolving]
  - Fistula [Recovering/Resolving]
  - Disorientation [Recovering/Resolving]
  - Infected fistula [Recovering/Resolving]
  - Blindness [Recovering/Resolving]
  - Hypotension [Recovering/Resolving]

NARRATIVE: CASE EVENT DATE: 2019
